FAERS Safety Report 10805481 (Version 1)
Quarter: 2015Q1

REPORT INFORMATION
  Report Type: Report from Study
  Country: US (occurrence: US)
  Receive Date: 20150217
  Receipt Date: 20150217
  Transmission Date: 20150721
  Serious: No
  Sender: FDA-Public Use
  Company Number: US-ABBVIE-14K-163-1264985-00

PATIENT
  Age: 36 Year
  Sex: Female

DRUGS (4)
  1. HUMIRA [Suspect]
     Active Substance: ADALIMUMAB
     Indication: CROHN^S DISEASE
     Dates: start: 20140424, end: 20140424
  2. HUMIRA [Suspect]
     Active Substance: ADALIMUMAB
     Dates: start: 20140508, end: 20140508
  3. IMITREX [Concomitant]
     Active Substance: SUMATRIPTAN\SUMATRIPTAN SUCCINATE
     Indication: MIGRAINE
     Dosage: INJECTION, PILL, OR NOSE SPRAY NOT USED FOR OVER SIX MONTHS
  4. HUMIRA [Suspect]
     Active Substance: ADALIMUMAB
     Dates: start: 20140522

REACTIONS (3)
  - Acne [Not Recovered/Not Resolved]
  - Injection site pain [Recovered/Resolved]
  - Rash [Not Recovered/Not Resolved]

NARRATIVE: CASE EVENT DATE: 20140424
